FAERS Safety Report 19392135 (Version 1)
Quarter: 2021Q2

REPORT INFORMATION
  Report Type: Report from Study
  Country: BR (occurrence: BR)
  Receive Date: 20210609
  Receipt Date: 20210609
  Transmission Date: 20210717
  Serious: Yes (Other)
  Sender: FDA-Public Use
  Company Number: BR-JNJFOC-20210604352

PATIENT
  Age: 58 Year
  Sex: Female

DRUGS (1)
  1. SIMPONI [Suspect]
     Active Substance: GOLIMUMAB
     Indication: RHEUMATOID ARTHRITIS
     Route: 058
     Dates: start: 20161125, end: 2020

REACTIONS (3)
  - Device related infection [Unknown]
  - Knee arthroplasty [Recovering/Resolving]
  - Hip surgery [Unknown]

NARRATIVE: CASE EVENT DATE: 2019
